FAERS Safety Report 5337573-0 (Version None)
Quarter: 2007Q2

REPORT INFORMATION
  Report Type: 
  Country: None (occurrence: None)
  Receive Date: 20070309
  Receipt Date: 20060323
  Transmission Date: 20071010
  Serious: Yes (Other)
  Sender: FDA-Public Use
  Company Number: US200602002791

PATIENT
  Age: 82 Year
  Sex: Male

DRUGS (1)
  1. GEMZAR [Suspect]
     Indication: PANCREATIC CARCINOMA
     Dosage: 1000 MG/M2, WEEKLY (1/W), INTRAVENOUS
     Route: 042
     Dates: start: 20060101

REACTIONS (1)
  - BLOOD BILIRUBIN INCREASED [None]
